FAERS Safety Report 6502309-4 (Version None)
Quarter: 2009Q4

REPORT INFORMATION
  Report Type: 
  Country: None (occurrence: None)
  Receive Date: 20091216
  Receipt Date: 20091021
  Transmission Date: 20100525
  Serious: No
  Sender: FDA-Public Use
  Company Number: US-ABBOTT-09P-163-0604715-00

PATIENT
  Sex: Male
  Weight: 90.8 kg

DRUGS (5)
  1. TRILIPIX [Suspect]
     Indication: BLOOD CHOLESTEROL INCREASED
     Dosage: DAILY AT HOUR OF SLEEP
     Route: 048
     Dates: start: 20090901, end: 20091001
  2. TRILIPIX [Suspect]
     Dosage: DAILY
     Route: 048
     Dates: start: 20091001, end: 20091020
  3. NORCO [Concomitant]
     Indication: POSTOPERATIVE ANALGESIA
     Dates: start: 20091001
  4. AMBIEN [Concomitant]
     Indication: SLEEP DISORDER
     Dosage: DAILY AT HOUR OF SLEEP
     Route: 048
  5. LOVENOX [Concomitant]
     Indication: ANTICOAGULANT THERAPY
     Route: 058

REACTIONS (1)
  - BLOOD CREATININE INCREASED [None]
